FAERS Safety Report 6666709-4 (Version None)
Quarter: 2010Q2

REPORT INFORMATION
  Report Type: 
  Country: None (occurrence: None)
  Receive Date: 20100402
  Receipt Date: 20100402
  Transmission Date: 20101027
  Serious: Yes (Life-Threatening, Hospitalization)
  Sender: FDA-Public Use
  Company Number: None

PATIENT
  Sex: Male
  Weight: 79.3795 kg

DRUGS (19)
  1. RISPERIDONE [Suspect]
     Indication: DEPRESSION
     Dosage: 1 MG 1/2 NITELY, THRU MEDICATION AWAY 12-19
     Dates: start: 20090601, end: 20091201
  2. ASPIRIN [Concomitant]
  3. STOOL SOFTNER [Concomitant]
  4. CENTRUM CARDIO [Concomitant]
  5. VITAMIN C [Concomitant]
  6. GLUCOSAMINE [Concomitant]
  7. CALCIUM [Concomitant]
  8. METAMUCIL-2 [Concomitant]
  9. PRYLOSEC [Concomitant]
  10. VITAMIN E [Concomitant]
  11. FENTANYL-100 [Concomitant]
  12. NEURONTIN [Concomitant]
  13. SIMVASTATIN [Suspect]
  14. ATIVAN [Concomitant]
  15. CLONIDINE [Concomitant]
  16. REMERON [Concomitant]
  17. CYMBALTA [Concomitant]
  18. PENICILLIN [Concomitant]
  19. TEGRETOL [Concomitant]

REACTIONS (12)
  - ARTHRALGIA [None]
  - BONE PAIN [None]
  - BRAIN INJURY [None]
  - DRUG HYPERSENSITIVITY [None]
  - DYSPNOEA [None]
  - HYPOAESTHESIA [None]
  - INITIAL INSOMNIA [None]
  - MIDDLE INSOMNIA [None]
  - MUSCULOSKELETAL CHEST PAIN [None]
  - PAIN IN EXTREMITY [None]
  - PNEUMONIA [None]
  - URTICARIA [None]
